FAERS Safety Report 9196726 (Version 1)
Quarter: 2013Q1

REPORT INFORMATION
  Report Type: Spontaneous
  Country: US (occurrence: None)
  Receive Date: 20120709
  Receipt Date: 20120709
  Transmission Date: 20140127
  Serious: Yes (Other)
  Sender: FDA-Public Use
  Company Number: PHEH2012US004339

PATIENT
  Age: 55 Year
  Sex: Male
  Weight: 98.9 kg

DRUGS (7)
  1. GLEEVEC (IMATINIB) [Suspect]
     Route: 048
  2. CIALIS (TADALAFIL) TABLET, 10 MG [Concomitant]
  3. ROPINIROLE (ROPINIROLE) TABLET, 1 MG [Concomitant]
  4. LISINOPRIL/HCTZ (HYDROCHLOROTHIAZIDE, LISNOPRIL) TABLET [Concomitant]
  5. OMEPRAZOLE (OMEPRAZOLE) CAPSULE, 10 MG [Concomitant]
  6. MAGNESIUM OXIDE (MAGNESIUM OXIDE) TABLET, 400 MG [Concomitant]
  7. VITAMIN D (ERGOCALCIFEROL) CAPSULE [Concomitant]

REACTIONS (4)
  - Neoplasm progression [None]
  - Eye haemorrhage [None]
  - Fatigue [None]
  - Erythema [None]
